FAERS Safety Report 16285675 (Version 1)
Quarter: 2019Q2

REPORT INFORMATION
  Report Type: Report from Study
  Country: US (occurrence: US)
  Receive Date: 20190508
  Receipt Date: 20190508
  Transmission Date: 20190711
  Serious: Yes (Other)
  Sender: FDA-Public Use
  Company Number: US-JNJFOC-20190506340

PATIENT
  Sex: Female

DRUGS (9)
  1. CLARITIN [Concomitant]
     Active Substance: LORATADINE
  2. IMBRUVICA [Suspect]
     Active Substance: IBRUTINIB
     Indication: CHRONIC LYMPHOCYTIC LEUKAEMIA
     Route: 048
     Dates: start: 20180829
  3. CALCIUM [Concomitant]
     Active Substance: CALCIUM
  4. LOSARTAN. [Concomitant]
     Active Substance: LOSARTAN
  5. FLONASE [Concomitant]
     Active Substance: FLUTICASONE PROPIONATE
  6. CRESTOR [Concomitant]
     Active Substance: ROSUVASTATIN CALCIUM
  7. VITAMIN D2 [Concomitant]
     Active Substance: ERGOCALCIFEROL
  8. ALBUTEROL. [Concomitant]
     Active Substance: ALBUTEROL
  9. BONIVA [Concomitant]
     Active Substance: IBANDRONATE SODIUM

REACTIONS (2)
  - Eye haemorrhage [Unknown]
  - Macular degeneration [Unknown]
